FAERS Safety Report 23310232 (Version 4)
Quarter: 2024Q1

REPORT INFORMATION
  Report Type: Spontaneous
  Country: US (occurrence: US)
  Receive Date: 20231218
  Receipt Date: 20240202
  Transmission Date: 20240409
  Serious: Yes (Hospitalization)
  Sender: FDA-Public Use
  Company Number: US-AVADEL CNS PHARMACEUTICALS, LLC-2023AVA00490

PATIENT
  Sex: Female
  Weight: 74.83 kg

DRUGS (18)
  1. LUMRYZ [Suspect]
     Active Substance: SODIUM OXYBATE
     Indication: Narcolepsy
     Dosage: 4.5 G, EACH NIGHT
     Route: 048
     Dates: start: 20230825, end: 20230831
  2. LUMRYZ [Suspect]
     Active Substance: SODIUM OXYBATE
     Indication: Narcolepsy
     Dosage: 6 G, EACH NIGHT
     Route: 048
     Dates: start: 20230901, end: 20230907
  3. LUMRYZ [Suspect]
     Active Substance: SODIUM OXYBATE
     Indication: Narcolepsy
     Dosage: 7.5 G, EACH NIGHT
     Route: 048
     Dates: start: 20230908, end: 20230914
  4. LUMRYZ [Suspect]
     Active Substance: SODIUM OXYBATE
     Indication: Narcolepsy
     Dosage: 9 G, EACH NIGHT
     Route: 048
     Dates: start: 20230915, end: 202311
  5. WAKIX [Suspect]
     Active Substance: PITOLISANT HYDROCHLORIDE
     Dosage: UNK
     Dates: start: 202310, end: 2023
  6. WAKIX [Suspect]
     Active Substance: PITOLISANT HYDROCHLORIDE
     Dosage: UNK
     Dates: start: 2023, end: 2023
  7. WAKIX [Suspect]
     Active Substance: PITOLISANT HYDROCHLORIDE
     Dosage: ^ADDED 2ND TAB OF 17.8 MG^
     Dates: start: 2023, end: 2023
  8. ARMODAFINIL [Concomitant]
     Active Substance: ARMODAFINIL
     Dosage: ^DOES [PRESUMED DOSES] WERE ALWAYS CHANGING BY PSYCH [PSYCHIATRIC PROVIDER]^
  9. ZOLOFT [Concomitant]
     Active Substance: SERTRALINE HYDROCHLORIDE
     Dosage: ^DOSES WERE ALWAYS CHANGING BY PSYCH^
  10. ZYPREXA [Concomitant]
     Active Substance: OLANZAPINE
     Dosage: ^DOSES WERE ALWAYS CHANGING BY PSYCH^
  11. FOCALIN [Concomitant]
     Active Substance: DEXMETHYLPHENIDATE HYDROCHLORIDE
     Dosage: ^DOSES WERE ALWAYS CHANGING BY PSYCH^
  12. LAMICTAL [Concomitant]
     Active Substance: LAMOTRIGINE
     Dosage: ^DOSES WERE ALWAYS CHANGING BY PSYCH^
  13. FLUOXETINE [Concomitant]
     Active Substance: FLUOXETINE HYDROCHLORIDE
     Dosage: ^DOSES WERE ALWAYS CHANGING BY PSYCH^
  14. ATOMOXETINE [Concomitant]
     Active Substance: ATOMOXETINE
     Dosage: ^DOSES WERE ALWAYS CHANGING BY PSYCH^
  15. BENZTROPINE MESYLATE [Concomitant]
     Active Substance: BENZTROPINE MESYLATE
     Dosage: ^DOSES WERE ALWAYS CHANGING BY PSYCH^
  16. SPIRONOLACTONE [Concomitant]
     Active Substance: SPIRONOLACTONE
  17. LEVONORGESTREL AND ETHINYL ESTRADIOL [Concomitant]
     Active Substance: ETHINYL ESTRADIOL\LEVONORGESTREL
  18. METFORMIN HYDROCHLORIDE [Concomitant]
     Active Substance: METFORMIN HYDROCHLORIDE

REACTIONS (6)
  - Psychotic disorder [Recovered/Resolved]
  - Hallucination, auditory [Recovered/Resolved]
  - Feeling jittery [Unknown]
  - Insomnia [Recovered/Resolved]
  - Anxiety [Unknown]
  - Therapeutic product effect incomplete [Recovered/Resolved]

NARRATIVE: CASE EVENT DATE: 20230101
